FAERS Safety Report 15964372 (Version 2)
Quarter: 2019Q1

REPORT INFORMATION
  Report Type: Report from Study
  Country: MX (occurrence: MX)
  Receive Date: 20190215
  Receipt Date: 20190215
  Transmission Date: 20190417
  Serious: Yes (Other)
  Sender: FDA-Public Use
  Company Number: MX-ROCHE-2265148

PATIENT

DRUGS (5)
  1. CYCLOPHOSPHAMIDE. [Suspect]
     Active Substance: CYCLOPHOSPHAMIDE
     Indication: DIFFUSE LARGE B-CELL LYMPHOMA
     Route: 065
  2. PREDNISONE. [Suspect]
     Active Substance: PREDNISONE
     Indication: DIFFUSE LARGE B-CELL LYMPHOMA
     Dosage: FOR 5 DAYS
     Route: 065
  3. RITUXIMAB. [Suspect]
     Active Substance: RITUXIMAB
     Indication: DIFFUSE LARGE B-CELL LYMPHOMA
     Route: 065
  4. DOXORUBICIN [Suspect]
     Active Substance: DOXORUBICIN
     Indication: DIFFUSE LARGE B-CELL LYMPHOMA
     Route: 065
  5. VINCRISTINE [Suspect]
     Active Substance: VINCRISTINE
     Indication: DIFFUSE LARGE B-CELL LYMPHOMA
     Route: 065

REACTIONS (15)
  - Febrile neutropenia [Unknown]
  - Gastrointestinal infection [Unknown]
  - Arrhythmia [Unknown]
  - Renal failure [Unknown]
  - Packed red blood cell transfusion [Unknown]
  - Neutropenia [Unknown]
  - Platelet transfusion [Unknown]
  - Oropharyngeal candidiasis [Unknown]
  - Sinusitis [Unknown]
  - Neuropathy peripheral [Unknown]
  - Lung infection [Unknown]
  - Skin infection [Unknown]
  - Genitourinary tract infection [Unknown]
  - Herpes simplex [Unknown]
  - Peritonitis [Unknown]
